FAERS Safety Report 20966278 (Version 1)
Quarter: 2022Q2

REPORT INFORMATION
  Report Type: Report from Study
  Country: CA (occurrence: CA)
  Receive Date: 20220616
  Receipt Date: 20220616
  Transmission Date: 20220721
  Serious: Yes (Other)
  Sender: FDA-Public Use
  Company Number: CA-Accord-265797

PATIENT
  Age: 40 Year
  Sex: Male

DRUGS (1)
  1. METHOTREXATE [Suspect]
     Active Substance: METHOTREXATE
     Indication: Corneal epithelial downgrowth
     Dosage: 400 UM/0.1ML MTX INJECTION (TOTAL 07 INJECTIONS)
     Route: 031

REACTIONS (3)
  - Retinal pigment epitheliopathy [Unknown]
  - Pulmonary tuberculosis [Unknown]
  - Off label use [Unknown]
